FAERS Safety Report 11829575 (Version 1)
Quarter: 2015Q4

REPORT INFORMATION
  Report Type: Spontaneous
  Country: US (occurrence: US)
  Receive Date: 20151212
  Receipt Date: 20151212
  Transmission Date: 20160305
  Serious: No
  Sender: FDA-Public Use
  Company Number: US-ZYDUS-006308

PATIENT
  Age: 61 Year
  Sex: Female

DRUGS (1)
  1. RISPERIDONE. [Suspect]
     Active Substance: RISPERIDONE
     Indication: DELUSION
     Dates: start: 20141017

REACTIONS (8)
  - Somnolence [Recovering/Resolving]
  - Poor peripheral circulation [Not Recovered/Not Resolved]
  - Dentofacial anomaly [Not Recovered/Not Resolved]
  - Hallucination [Not Recovered/Not Resolved]
  - Sensory disturbance [Not Recovered/Not Resolved]
  - Insomnia [Not Recovered/Not Resolved]
  - Negative thoughts [Not Recovered/Not Resolved]
  - Thought insertion [Not Recovered/Not Resolved]
